FAERS Safety Report 25879800 (Version 1)
Quarter: 2025Q4

REPORT INFORMATION
  Report Type: Spontaneous
  Country: BR (occurrence: BR)
  Receive Date: 20251003
  Receipt Date: 20251003
  Transmission Date: 20260117
  Serious: Yes (Other)
  Sender: CELLTRION
  Company Number: BR-CELLTRION INC.-2022BR019356

PATIENT

DRUGS (8)
  1. INFLIXIMAB [Suspect]
     Active Substance: INFLIXIMAB
     Indication: Crohn^s disease
     Dosage: 760 MG (8 AMPOULES) EVERY 2 MONTHS
     Route: 042
     Dates: start: 20221117
  2. INFLIXIMAB [Suspect]
     Active Substance: INFLIXIMAB
     Dosage: EVERY 2 MONTHS
     Route: 042
  3. INFLIXIMAB [Suspect]
     Active Substance: INFLIXIMAB
     Dosage: EVERY MONTH
     Route: 042
  4. INFLIXIMAB [Suspect]
     Active Substance: INFLIXIMAB
     Indication: Crohn^s disease
  5. SIMVASTATIN [Concomitant]
     Active Substance: SIMVASTATIN
     Indication: Hypercholesterolaemia
     Dosage: 2 TABLETS AT NIGHT
     Route: 065
     Dates: start: 202503
  6. HYDROCHLOROTHIAZIDE [Concomitant]
     Active Substance: HYDROCHLOROTHIAZIDE
     Indication: Hypertension
     Dosage: 1 TABLET IN THE MORNING
     Route: 065
  7. LOSARTAN [Concomitant]
     Active Substance: LOSARTAN
     Indication: Hypertension
     Dosage: 1 TABLET IN THE MORNING
     Route: 065
  8. ASPIRIN [Concomitant]
     Active Substance: ASPIRIN
     Indication: Anticoagulant therapy
     Dosage: 2 TABLETS A DAY (AT LUNCH AND DINNER)
     Route: 065

REACTIONS (8)
  - Crohn^s disease [Unknown]
  - Hernia [Unknown]
  - Stoma site discharge [Unknown]
  - Rectal discharge [Unknown]
  - Product availability issue [Unknown]
  - Product distribution issue [Unknown]
  - Therapy interrupted [Unknown]
  - Therapeutic response shortened [Unknown]

NARRATIVE: CASE EVENT DATE: 20250924
